FAERS Safety Report 12931648 (Version 2)
Quarter: 2017Q1

REPORT INFORMATION
  Report Type: Report from Study
  Country: US (occurrence: US)
  Receive Date: 20161110
  Receipt Date: 20170126
  Transmission Date: 20170428
  Serious: No
  Sender: FDA-Public Use
  Company Number: PHEH2016US029481

PATIENT
  Age: 30 Year
  Sex: Female
  Weight: 61.36 kg

DRUGS (1)
  1. ILARIS [Suspect]
     Active Substance: CANAKINUMAB
     Indication: JUVENILE IDIOPATHIC ARTHRITIS
     Dosage: 240 MG, EVERY 4 WEEKS
     Route: 058
     Dates: start: 20150615

REACTIONS (2)
  - Nasal congestion [Recovered/Resolved]
  - Nasal discharge discolouration [Recovered/Resolved]

NARRATIVE: CASE EVENT DATE: 20161102
